FAERS Safety Report 6341699-2 (Version None)
Quarter: 2009Q3

REPORT INFORMATION
  Report Type: 
  Country: None (occurrence: None)
  Receive Date: 20090901
  Receipt Date: 20090901
  Transmission Date: 20100115
  Serious: Yes (Other)
  Sender: FDA-Public Use
  Company Number: None

PATIENT

DRUGS (2)
  1. VALPROIC ACID ER 250MG MYLAN [Suspect]
  2. VALPROIC ACID ER 250MG MYLAN [Suspect]

REACTIONS (2)
  - PANCYTOPENIA [None]
  - PRODUCT SUBSTITUTION ISSUE [None]
